FAERS Safety Report 25338020 (Version 2)
Quarter: 2025Q2

REPORT INFORMATION
  Report Type: Spontaneous
  Country: AU (occurrence: AU)
  Receive Date: 20250520
  Receipt Date: 20250529
  Transmission Date: 20250717
  Serious: Yes (Other)
  Sender: SANDOZ
  Company Number: AU-SANDOZ-SDZ2025AU028143

PATIENT

DRUGS (1)
  1. ESTRADIOL\NORETHINDRONE ACETATE [Suspect]
     Active Substance: ESTRADIOL\NORETHINDRONE ACETATE
     Indication: Product used for unknown indication
     Route: 065

REACTIONS (8)
  - Skin lesion [Unknown]
  - Discomfort [Unknown]
  - Toxicity to various agents [Unknown]
  - Hypersensitivity [Not Recovered/Not Resolved]
  - Urticaria [Unknown]
  - Application site pruritus [Unknown]
  - Blister [Unknown]
  - Skin swelling [Unknown]
